FAERS Safety Report 7371938-0 (Version None)
Quarter: 2011Q1

REPORT INFORMATION
  Report Type: 
  Country: None (occurrence: None)
  Receive Date: 20110324
  Receipt Date: 20110314
  Transmission Date: 20110831
  Serious: Yes (Other)
  Sender: FDA-Public Use
  Company Number: US-SANOFI-AVENTIS-2011SA005994

PATIENT
  Age: 82 Year
  Sex: Male
  Weight: 92.99 kg

DRUGS (20)
  1. FISH OIL [Concomitant]
     Dosage: WITH MEALS
     Route: 065
  2. LANTUS [Concomitant]
     Dosage: TAKES UPTO 25 UNITS AT 22:00 HOURS
     Route: 058
  3. METFORMIN HCL [Concomitant]
     Dosage: WITH MEALS
     Route: 065
  4. MULTAQ [Suspect]
     Indication: ATRIAL FIBRILLATION
     Route: 048
     Dates: start: 20100101
  5. ACETYLSALICYLIC ACID [Concomitant]
     Dosage: TAKES AT 10:00 AND 22:00 HOURS
     Route: 065
  6. VALSARTAN [Concomitant]
     Dosage: AT 10:00 HOURS
     Route: 065
  7. LORAZEPAM [Concomitant]
     Dosage: AT 22:00 HOURS
     Route: 065
  8. COUMADIN [Concomitant]
     Dosage: 6.0-7.0 AT 18:00 HOURS
     Route: 065
  9. NIFEDIPINE [Concomitant]
     Dosage: AT 22:00 HOURS
     Route: 065
  10. PYRIDOXINE [Concomitant]
     Dosage: AT 22:00 HOURS
     Route: 065
  11. FUROSEMIDE [Concomitant]
     Dosage: BEFORE BREAKFAST
     Route: 065
  12. CHONDROITIN W/GLUCOSAMINE [Concomitant]
     Dosage: 2 TABLETS BEFORE BREAKFAST
     Route: 048
  13. CARVEDILOL [Concomitant]
     Dosage: AT 10:00 AND 22:00 HOURS
     Route: 065
  14. JANUVIA [Concomitant]
     Dosage: WITH BREAKFAST
     Route: 065
  15. MULTIVITAMIN [Concomitant]
     Dosage: 1 TABLET AT LUNCH
     Route: 048
  16. VITAMIN E [Concomitant]
     Dosage: AT LUNCH DOSE:400 UNIT(S)
     Route: 065
  17. CHROMIUM PICOLINATE [Concomitant]
     Dosage: AT LUNCH TIME
     Route: 065
  18. CENTRUM [Concomitant]
     Dosage: 1 TABLET BEFORE BREAKFAST
     Route: 048
  19. LINSEED [Concomitant]
     Dosage: WITH MEALS
     Route: 065
  20. ASCORBIC ACID [Concomitant]
     Dosage: AT LUNCH DOSE:500 UNIT(S)
     Route: 065

REACTIONS (4)
  - PLATELET COUNT DECREASED [None]
  - PROSTATE CANCER [None]
  - ASTHENIA [None]
  - FATIGUE [None]
